FAERS Safety Report 19636430 (Version 1)
Quarter: 2021Q3

REPORT INFORMATION
  Report Type: Spontaneous
  Country: NL (occurrence: NL)
  Receive Date: 20210729
  Receipt Date: 20210729
  Transmission Date: 20211014
  Serious: Yes (Hospitalization, Other)
  Sender: FDA-Public Use
  Company Number: NL-PFIZER INC-2021904483

PATIENT
  Age: 88 Year
  Sex: Female

DRUGS (2)
  1. PALBOCICLIB [Suspect]
     Active Substance: PALBOCICLIB
     Dosage: 75 MG
     Dates: start: 20190927, end: 20201008
  2. FULVESTRANT. [Suspect]
     Active Substance: FULVESTRANT
     Dosage: 500 MG

REACTIONS (5)
  - Craniocerebral injury [Unknown]
  - Hemiplegia [Unknown]
  - Neutrophil count decreased [Unknown]
  - Fall [Unknown]
  - Epilepsy [Unknown]

NARRATIVE: CASE EVENT DATE: 20200102
